FAERS Safety Report 11580207 (Version 1)
Quarter: 2015Q3

REPORT INFORMATION
  Report Type: Spontaneous
  Country: US (occurrence: US)
  Receive Date: 20150916
  Receipt Date: 20150916
  Transmission Date: 20151125
  Serious: Yes (Hospitalization, Other)
  Sender: FDA-Public Use
  Company Number: US-ELI_LILLY_AND_COMPANY-US200805000145

PATIENT
  Age: 84 Year
  Sex: Female

DRUGS (8)
  1. DIGITEK [Concomitant]
     Active Substance: DIGOXIN
  2. PREVACID [Concomitant]
     Active Substance: LANSOPRAZOLE
  3. COUMADIN [Concomitant]
     Active Substance: WARFARIN SODIUM
  4. CLONIDINE. [Concomitant]
     Active Substance: CLONIDINE
  5. FORTEO [Suspect]
     Active Substance: TERIPARATIDE
     Dosage: UNK, UNK
     Dates: start: 200804
  6. PRILOSEC [Concomitant]
     Active Substance: OMEPRAZOLE MAGNESIUM
     Dosage: 40 MG, UNK
  7. CADUET [Concomitant]
     Active Substance: AMLODIPINE BESYLATE\ATORVASTATIN CALCIUM
  8. SOTALOL. [Concomitant]
     Active Substance: SOTALOL

REACTIONS (2)
  - Cough [Not Recovered/Not Resolved]
  - Pneumonia [Recovering/Resolving]

NARRATIVE: CASE EVENT DATE: 20080423
